FAERS Safety Report 6504873-8 (Version None)
Quarter: 2009Q4

REPORT INFORMATION
  Report Type: 
  Country: None (occurrence: None)
  Receive Date: 20091218
  Receipt Date: 20091210
  Transmission Date: 20100525
  Serious: Yes (Hospitalization)
  Sender: FDA-Public Use
  Company Number: FR-ROCHE-656788

PATIENT
  Sex: Female

DRUGS (7)
  1. BONIVA [Suspect]
     Route: 048
     Dates: start: 20070301, end: 20090801
  2. HYDROCORTISONE [Interacting]
     Indication: ADRENAL INSUFFICIENCY
     Dosage: DURATION REPORTED AS FOR 3 YEARS.
     Route: 048
  3. NEXIUM [Concomitant]
  4. DIFFU-K [Concomitant]
  5. CALDINE [Concomitant]
  6. AVLOCARDYL [Concomitant]
  7. CORTANCYL [Concomitant]

REACTIONS (2)
  - DRUG INTERACTION [None]
  - OSTEONECROSIS [None]
